FAERS Safety Report 5419376-1 (Version None)
Quarter: 2007Q3

REPORT INFORMATION
  Report Type: 
  Country: None (occurrence: None)
  Receive Date: 20070816
  Receipt Date: 20070816
  Transmission Date: 20080115
  Serious: Yes (Hospitalization)
  Sender: FDA-Public Use
  Company Number: None

PATIENT
  Age: 48 Year
  Sex: Male
  Weight: 131.8 kg

DRUGS (1)
  1. ELOXATIN [Suspect]
     Indication: COLORECTAL CANCER METASTATIC
     Dosage: 610 MG ONCE IV
     Route: 042
     Dates: start: 20070307, end: 20070307

REACTIONS (4)
  - ASTHENIA [None]
  - MUSCLE SPASMS [None]
  - PARAESTHESIA [None]
  - THROAT TIGHTNESS [None]
